FAERS Safety Report 9356997 (Version 3)
Quarter: 2014Q1

REPORT INFORMATION
  Report Type: Spontaneous
  Country: US (occurrence: US)
  Receive Date: 20130620
  Receipt Date: 20140306
  Transmission Date: 20141002
  Serious: Yes (Hospitalization, Other)
  Sender: FDA-Public Use
  Company Number: US-ROCHE-783570

PATIENT
  Sex: Male

DRUGS (7)
  1. ACCUTANE [Suspect]
     Indication: ACNE
     Route: 065
  2. ACCUTANE [Suspect]
     Route: 065
  3. ACCUTANE [Suspect]
     Route: 065
     Dates: start: 2000, end: 2001
  4. IBUPROFEN [Concomitant]
  5. DICLOFENAC [Concomitant]
  6. SINGULAIR [Concomitant]
  7. ALLEGRON [Concomitant]

REACTIONS (6)
  - Suicidal ideation [Unknown]
  - Colitis ulcerative [Unknown]
  - Inflammatory bowel disease [Unknown]
  - Emotional distress [Unknown]
  - Depression [Unknown]
  - Irritable bowel syndrome [Unknown]
